FAERS Safety Report 11503563 (Version 10)
Quarter: 2017Q2

REPORT INFORMATION
  Report Type: Spontaneous
  Country: US (occurrence: US)
  Receive Date: 20150914
  Receipt Date: 20170519
  Transmission Date: 20170829
  Serious: Yes (Other)
  Sender: FDA-Public Use
  Company Number: US-ASTELLAS-2015US026355

PATIENT
  Age: 65 Year
  Sex: Male

DRUGS (3)
  1. XTANDI [Suspect]
     Active Substance: ENZALUTAMIDE
     Indication: PROSTATE CANCER
     Route: 048
     Dates: start: 20150625
  2. MAGNESIUM [Concomitant]
     Active Substance: MAGNESIUM
     Indication: PRODUCT USED FOR UNKNOWN INDICATION
     Dosage: UNK UNK, UNKNOWN FREQ.
     Route: 065
  3. MARIJUANA [Concomitant]
     Active Substance: CANNABIS SATIVA SUBSP. INDICA TOP
     Indication: PRODUCT USED FOR UNKNOWN INDICATION
     Dosage: UNK UNK, UNKNOWN FREQ.
     Route: 065

REACTIONS (14)
  - Upper-airway cough syndrome [Unknown]
  - Diarrhoea [Not Recovered/Not Resolved]
  - Agitation [Unknown]
  - Incorrect dose administered [Unknown]
  - Bone cancer [Unknown]
  - Diarrhoea [Unknown]
  - Headache [Unknown]
  - Headache [Unknown]
  - Drug dose omission [Unknown]
  - Hypoaesthesia [Unknown]
  - Nausea [Unknown]
  - Chills [Recovered/Resolved]
  - Insomnia [Unknown]
  - Depression [Unknown]

NARRATIVE: CASE EVENT DATE: 20160104
